FAERS Safety Report 19165238 (Version 2)
Quarter: 2021Q2

REPORT INFORMATION
  Report Type: Report from Study
  Country: US (occurrence: US)
  Receive Date: 20210421
  Receipt Date: 20210624
  Transmission Date: 20210717
  Serious: Yes (Other)
  Sender: FDA-Public Use
  Company Number: US-SEATTLE GENETICS-2020SGN04500

PATIENT
  Sex: Female

DRUGS (5)
  1. TUCATINIB [Suspect]
     Active Substance: TUCATINIB
     Dosage: UNK
  2. TUCATINIB [Suspect]
     Active Substance: TUCATINIB
     Dosage: UNK
  3. TUCATINIB [Suspect]
     Active Substance: TUCATINIB
     Dosage: UNK
  4. TUCATINIB [Suspect]
     Active Substance: TUCATINIB
     Indication: BREAST CANCER FEMALE
     Dosage: UNK, BID
  5. TUCATINIB [Suspect]
     Active Substance: TUCATINIB
     Dosage: UNK

REACTIONS (19)
  - Fasciotomy [Unknown]
  - Liposuction [Unknown]
  - Pain in jaw [Unknown]
  - Dizziness [Unknown]
  - Feeling abnormal [Recovering/Resolving]
  - Fluid retention [Unknown]
  - Laboratory test abnormal [Unknown]
  - Herpes zoster [Unknown]
  - Neck pain [Unknown]
  - Inflammation [Unknown]
  - Hyperhidrosis [Recovering/Resolving]
  - Unevaluable event [Unknown]
  - Neuropathy peripheral [Unknown]
  - Insomnia [Unknown]
  - Renal impairment [Unknown]
  - Chest pain [Unknown]
  - Constipation [Unknown]
  - Cystitis [Unknown]
  - Weight increased [Unknown]
